FAERS Safety Report 14584684 (Version 2)
Quarter: 2018Q2

REPORT INFORMATION
  Report Type: Spontaneous
  Country: GB (occurrence: GB)
  Receive Date: 20180301
  Receipt Date: 20180510
  Transmission Date: 20180711
  Serious: Yes (Life-Threatening, Hospitalization, Other)
  Sender: FDA-Public Use
  Company Number: GB-AMGEN-GBRSP2018025391

PATIENT
  Age: 84 Year
  Sex: Female
  Weight: 55 kg

DRUGS (4)
  1. PROLIA [Suspect]
     Active Substance: DENOSUMAB
     Indication: OSTEOPOROSIS
     Dosage: 60 MG, UNK
     Route: 058
     Dates: start: 20171130
  2. WARFARIN [Concomitant]
     Active Substance: WARFARIN
  3. ADCAL D3 [Concomitant]
     Active Substance: CALCIUM CARBONATE\CHOLECALCIFEROL
     Indication: OSTEOPOROSIS
     Dosage: 1 TAB, BID
  4. BISOPROLOL [Concomitant]
     Active Substance: BISOPROLOL
     Indication: ATRIAL FIBRILLATION
     Dosage: 2.5 MG, QD

REACTIONS (3)
  - Renal infarct [Unknown]
  - Renal vascular thrombosis [Unknown]
  - Urosepsis [Unknown]

NARRATIVE: CASE EVENT DATE: 201712
